FAERS Safety Report 21661204 (Version 1)
Quarter: 2022Q4

REPORT INFORMATION
  Report Type: Spontaneous
  Country: US (occurrence: US)
  Receive Date: 20221130
  Receipt Date: 20221130
  Transmission Date: 20230112
  Serious: No
  Sender: FDA-Public Use
  Company Number: US-AIMMUNE THERAPEUTICS, INC.-2022AIMT02772

PATIENT

DRUGS (2)
  1. ZENPEP [Suspect]
     Active Substance: PANCRELIPASE AMYLASE\PANCRELIPASE LIPASE\PANCRELIPASE PROTEASE
     Indication: Pancreatic failure
     Dosage: 40000 USP UNIT, 3 TABLETS WITH EACH MEAL AND 1 WITH A SNACK
     Route: 048
  2. ZENPEP [Suspect]
     Active Substance: PANCRELIPASE AMYLASE\PANCRELIPASE LIPASE\PANCRELIPASE PROTEASE
     Dosage: 40000 USP UNIT, 3 TABLETS WITH EACH MEAL AND 1 WITH A SNACK, LAST DOSE PRIOR EVENT
     Route: 048

REACTIONS (5)
  - Flatulence [Unknown]
  - Constipation [Unknown]
  - Abdominal pain upper [Unknown]
  - Weight decreased [Unknown]
  - Headache [Unknown]
